FAERS Safety Report 14776875 (Version 1)
Quarter: 2018Q2

REPORT INFORMATION
  Report Type: Spontaneous
  Country: NL (occurrence: NL)
  Receive Date: 20180419
  Receipt Date: 20180419
  Transmission Date: 20180711
  Serious: Yes (Other)
  Sender: FDA-Public Use
  Company Number: NL-CONCORDIA PHARMACEUTICALS INC.-E2B_00011112

PATIENT
  Age: 55 Year
  Sex: Female

DRUGS (1)
  1. TRANYLCYPROMINE [Suspect]
     Active Substance: TRANYLCYPROMINE

REACTIONS (13)
  - Erysipelas [Unknown]
  - Diarrhoea [Unknown]
  - Fatigue [Unknown]
  - Blood folate decreased [Unknown]
  - Confusional state [Unknown]
  - Decreased appetite [Unknown]
  - Food craving [Unknown]
  - Vitamin B6 decreased [Unknown]
  - Vitamin D decreased [Unknown]
  - Glossodynia [Unknown]
  - Depression [Unknown]
  - Dental caries [Unknown]
  - Pain in extremity [Unknown]
